FAERS Safety Report 7048807-9 (Version None)
Quarter: 2010Q4

REPORT INFORMATION
  Report Type: 
  Country: None (occurrence: None)
  Receive Date: 20101018
  Receipt Date: 20101006
  Transmission Date: 20110411
  Serious: Yes (Hospitalization)
  Sender: FDA-Public Use
  Company Number: PHHY2010US66832

PATIENT
  Sex: Female

DRUGS (3)
  1. RECLAST [Suspect]
     Indication: SENILE OSTEOPOROSIS
     Dosage: 5 MG
     Dates: start: 20100930
  2. SOMA [Concomitant]
  3. LORTAB [Concomitant]

REACTIONS (5)
  - GAIT DISTURBANCE [None]
  - HYPOTENSION [None]
  - PAIN [None]
  - PYREXIA [None]
  - SWELLING [None]
